FAERS Safety Report 4720536-3 (Version None)
Quarter: 2005Q3

REPORT INFORMATION
  Report Type: 
  Country: None (occurrence: None)
  Receive Date: 20050719
  Receipt Date: 20050706
  Transmission Date: 20060218
  Serious: Yes (Other)
  Sender: FDA-Public Use
  Company Number: 2005092498

PATIENT
  Age: 47 Year
  Sex: Male
  Weight: 153.3158 kg

DRUGS (7)
  1. BEXTRA [Suspect]
     Indication: BURSITIS
     Dosage: 40 MG (20 MG, 2 IN 1 D), ORAL
     Route: 048
  2. PERCOCET [Concomitant]
  3. FOSINOPRIL SODIUM [Concomitant]
  4. ZOLOFT [Concomitant]
  5. BACLOFEN [Concomitant]
  6. CIPROFLOXACIN [Concomitant]
  7. ZYRTEC [Concomitant]

REACTIONS (13)
  - AMNESIA [None]
  - CAROTID ARTERY STENOSIS [None]
  - COLD SWEAT [None]
  - CONSTIPATION [None]
  - GASTRIC DISORDER [None]
  - HEAT RASH [None]
  - INFLUENZA LIKE ILLNESS [None]
  - LOSS OF CONSCIOUSNESS [None]
  - NASAL DISCOMFORT [None]
  - PALPITATIONS [None]
  - SKIN EXFOLIATION [None]
  - SKIN NODULE [None]
  - VISUAL DISTURBANCE [None]
